FAERS Safety Report 21445633 (Version 2)
Quarter: 2022Q4

REPORT INFORMATION
  Report Type: Spontaneous
  Country: JP (occurrence: JP)
  Receive Date: 20221012
  Receipt Date: 20221018
  Transmission Date: 20230113
  Serious: Yes (Death, Other)
  Sender: FDA-Public Use
  Company Number: JP-BRISTOL-MYERS SQUIBB COMPANY-2022-117824

PATIENT
  Age: 62 Year
  Sex: Male

DRUGS (2)
  1. ABRAXANE [Suspect]
     Active Substance: PACLITAXEL
     Indication: Acinar cell carcinoma of pancreas
     Route: 041
  2. GEMCITABINE [Concomitant]
     Active Substance: GEMCITABINE
     Indication: Acinar cell carcinoma of pancreas
     Route: 065

REACTIONS (4)
  - Portal venous gas [Fatal]
  - Gastrointestinal necrosis [Fatal]
  - Pyrexia [Unknown]
  - Platelet count decreased [Unknown]
